FAERS Safety Report 5670757-0 (Version None)
Quarter: 2008Q1

REPORT INFORMATION
  Report Type: 
  Country: None (occurrence: None)
  Receive Date: 20080318
  Receipt Date: 20080310
  Transmission Date: 20080703
  Serious: Yes (Other)
  Sender: FDA-Public Use
  Company Number: PHEH2008US02624

PATIENT
  Age: 75 Year
  Sex: Female

DRUGS (4)
  1. ZOMETA [Suspect]
     Indication: METASTASES TO BONE
     Dosage: 4MG, QMONTH
     Route: 042
     Dates: start: 20070303
  2. FASLODEX [Concomitant]
     Dosage: 250 MG, QMO
     Route: 030
     Dates: start: 20070401
  3. CALTRATE [Concomitant]
     Dosage: 600 MG, BID
     Route: 048
  4. VITAMIN D [Concomitant]
     Dosage: 400 MG, BID
     Route: 048

REACTIONS (9)
  - AORTIC ANEURYSM [None]
  - ARTHRALGIA [None]
  - BLOOD HOMOCYSTEINE INCREASED [None]
  - BLOOD PRESSURE INCREASED [None]
  - BLOOD URINE PRESENT [None]
  - INFLUENZA LIKE ILLNESS [None]
  - MUSCULOSKELETAL PAIN [None]
  - PYREXIA [None]
  - URINARY TRACT INFECTION [None]
